FAERS Safety Report 14103030 (Version 1)
Quarter: 2017Q4

REPORT INFORMATION
  Report Type: Spontaneous
  Country: US (occurrence: US)
  Receive Date: 20171018
  Receipt Date: 20171018
  Transmission Date: 20180321
  Serious: No
  Sender: FDA-Public Use
  Company Number: US-MYLANLABS-2017M1065865

PATIENT
  Age: 46 Year
  Sex: Female
  Weight: 58 kg

DRUGS (1)
  1. ESTRADIOL. [Suspect]
     Active Substance: ESTRADIOL
     Indication: MENOPAUSE
     Dosage: 1 DF, BIWEEKLY
     Route: 062
     Dates: start: 201707

REACTIONS (2)
  - Product adhesion issue [Unknown]
  - Drug ineffective [Not Recovered/Not Resolved]

NARRATIVE: CASE EVENT DATE: 201709
